FAERS Safety Report 13810166 (Version 2)
Quarter: 2017Q3

REPORT INFORMATION
  Report Type: Spontaneous
  Country: US (occurrence: US)
  Receive Date: 20170728
  Receipt Date: 20170822
  Transmission Date: 20171127
  Serious: Yes (Hospitalization, Other)
  Sender: FDA-Public Use
  Company Number: US-GLAXOSMITHKLINE-US2017113734

PATIENT
  Age: 73 Year
  Sex: Male

DRUGS (2)
  1. VENTOLIN HFA [Suspect]
     Active Substance: ALBUTEROL SULFATE
     Indication: CHRONIC OBSTRUCTIVE PULMONARY DISEASE
     Dosage: 2 PUFF(S), PRN
  2. FERROUS SULFATE. [Concomitant]
     Active Substance: FERROUS SULFATE

REACTIONS (10)
  - Transfusion [Unknown]
  - Dyspnoea [Recovered/Resolved]
  - Rib fracture [Recovering/Resolving]
  - Anaemia [Recovering/Resolving]
  - Fall [Recovered/Resolved]
  - Tachypnoea [Recovered/Resolved]
  - Wrong technique in product usage process [Recovered/Resolved]
  - Lenticular operation [Recovering/Resolving]
  - Vision correction operation [Recovering/Resolving]
  - Wrong technique in device usage process [Recovered/Resolved]

NARRATIVE: CASE EVENT DATE: 201704
